FAERS Safety Report 8871904 (Version 1)
Quarter: 2012Q4

REPORT INFORMATION
  Report Type: 
  Country: US (occurrence: US)
  Receive Date: 20121029
  Receipt Date: 20121029
  Transmission Date: 20130627
  Serious: Yes (Hospitalization)
  Sender: FDA-Public Use
  Company Number: PHEH2012US020492

PATIENT
  Sex: Male

DRUGS (6)
  1. DIOVAN [Suspect]
     Dosage: 160 mg, UNK
     Dates: start: 20120610
  2. DIOVAN [Suspect]
     Dosage: 80 mg, UNK
  3. METFORMIN [Suspect]
     Indication: DIABETES MELLITUS
     Dosage: 500 mg, UNK
  4. PRADAXA [Concomitant]
     Dosage: 150 mg, UNK
  5. HYDROCHLOROTHIAZIDE [Concomitant]
     Dosage: 12.5 g, UNK
  6. RAPITROL [Concomitant]

REACTIONS (9)
  - Cerebrovascular accident [Not Recovered/Not Resolved]
  - Dizziness [Not Recovered/Not Resolved]
  - Asthenia [Unknown]
  - Chest pain [Unknown]
  - Visual impairment [Unknown]
  - Oropharyngeal pain [Not Recovered/Not Resolved]
  - Chills [Not Recovered/Not Resolved]
  - Oedema peripheral [Not Recovered/Not Resolved]
  - Abdominal discomfort [Unknown]
